FAERS Safety Report 7833447-1 (Version None)
Quarter: 2011Q4

REPORT INFORMATION
  Report Type: 
  Country: None (occurrence: None)
  Receive Date: 20111024
  Receipt Date: 20101010
  Transmission Date: 20120403
  Serious: No
  Sender: FDA-Public Use
  Company Number: US-BAYER-201036417NA

PATIENT
  Age: 83 Year
  Sex: Female

DRUGS (3)
  1. CIPROFLOXACIN [Suspect]
     Indication: EAR INFECTION
     Dosage: 500 MG, BID
     Dates: start: 20111002, end: 20111001
  2. ACETAMINOPHEN [Concomitant]
  3. NEURONTIN [Concomitant]

REACTIONS (1)
  - PAIN [None]
